FAERS Safety Report 7699322-0 (Version None)
Quarter: 2011Q3

REPORT INFORMATION
  Report Type: 
  Country: None (occurrence: None)
  Receive Date: 20110819
  Receipt Date: 20110812
  Transmission Date: 20111222
  Serious: Yes (Other)
  Sender: FDA-Public Use
  Company Number: US-BAYER-2011-072688

PATIENT
  Age: 36 Year
  Sex: Female

DRUGS (1)
  1. YASMIN [Suspect]
     Dosage: UNK
     Dates: start: 20040101, end: 20041001

REACTIONS (5)
  - PAIN [None]
  - PULMONARY EMBOLISM [None]
  - ANXIETY [None]
  - ANHEDONIA [None]
  - INJURY [None]
